FAERS Safety Report 6966757-0 (Version None)
Quarter: 2010Q3

REPORT INFORMATION
  Report Type: 
  Country: None (occurrence: None)
  Receive Date: 20100906
  Receipt Date: 20100826
  Transmission Date: 20110219
  Serious: Yes (Life-Threatening, Hospitalization)
  Sender: FDA-Public Use
  Company Number: JP-BRISTOL-MYERS SQUIBB COMPANY-15236151

PATIENT
  Age: 49 Year
  Sex: Male
  Weight: 62 kg

DRUGS (4)
  1. BARACLUDE [Suspect]
     Indication: HEPATITIS B
     Dosage: ALSO ON 10JUL2010
     Route: 048
     Dates: start: 20100710, end: 20100802
  2. PRIMPERAN TAB [Suspect]
     Indication: NAUSEA
     Route: 048
     Dates: start: 20100721, end: 20100731
  3. LOXONIN [Suspect]
     Indication: PYREXIA
     Route: 048
     Dates: start: 20100721, end: 20100731
  4. SELBEX [Suspect]
     Route: 048
     Dates: start: 20100721, end: 20100731

REACTIONS (3)
  - ANAEMIA [None]
  - PLATELET COUNT DECREASED [None]
  - THROMBOTIC THROMBOCYTOPENIC PURPURA [None]
